FAERS Safety Report 10664935 (Version 1)
Quarter: 2014Q4

REPORT INFORMATION
  Report Type: Spontaneous
  Country: FR (occurrence: FR)
  Receive Date: 20141219
  Receipt Date: 20141219
  Transmission Date: 20150529
  Serious: Yes (Hospitalization)
  Sender: FDA-Public Use
  Company Number: FR-SA-2014SA173221

PATIENT
  Age: 1 Hour
  Sex: Male
  Weight: 1.47 kg

DRUGS (6)
  1. LAMICTAL [Suspect]
     Active Substance: LAMOTRIGINE
     Route: 064
     Dates: end: 20140714
  2. MAGNESIUM SULFATE. [Concomitant]
     Active Substance: MAGNESIUM SULFATE
     Route: 064
     Dates: end: 20140714
  3. ADALAT [Concomitant]
     Active Substance: NIFEDIPINE
     Route: 064
     Dates: end: 20140714
  4. STILNOX [Suspect]
     Active Substance: ZOLPIDEM TARTRATE
     Route: 064
     Dates: end: 20140714
  5. ANTIBIOTICS [Concomitant]
     Active Substance: UNSPECIFIED INGREDIENT
     Route: 064
     Dates: end: 20140714
  6. KEPPRA [Suspect]
     Active Substance: LEVETIRACETAM
     Route: 064
     Dates: end: 20140714

REACTIONS (2)
  - Foetal exposure during pregnancy [Unknown]
  - Premature baby [Recovered/Resolved with Sequelae]

NARRATIVE: CASE EVENT DATE: 20140714
